FAERS Safety Report 20318131 (Version 1)
Quarter: 2022Q1

REPORT INFORMATION
  Report Type: Spontaneous
  Country: GB (occurrence: GB)
  Receive Date: 20220110
  Receipt Date: 20220110
  Transmission Date: 20220423
  Serious: Yes (Life-Threatening, Hospitalization, Other)
  Sender: FDA-Public Use
  Company Number: None

PATIENT
  Age: 59 Year
  Sex: Male

DRUGS (6)
  1. LANSOPRAZOLE [Suspect]
     Active Substance: LANSOPRAZOLE
     Indication: Product used for unknown indication
     Dosage: 30 MILLIGRAM, QD
     Route: 048
     Dates: start: 202101, end: 20211106
  2. ATORVASTATIN CALCIUM [Concomitant]
     Active Substance: ATORVASTATIN CALCIUM
     Dosage: 80 MILLIGRAM
  3. CALCIUM\CHOLECALCIFEROL [Concomitant]
     Active Substance: CALCIUM\CHOLECALCIFEROL
     Dosage: UNK
  4. CLOPIDOGREL BESILATE [Concomitant]
     Active Substance: CLOPIDOGREL BESILATE
     Dosage: UNK
  5. FOLIC ACID [Concomitant]
     Active Substance: FOLIC ACID
     Dosage: UNK
  6. RAMIPRIL [Concomitant]
     Active Substance: RAMIPRIL
     Dosage: UNK

REACTIONS (11)
  - Cerebral atrophy [Unknown]
  - Delirium [Unknown]
  - Electrolyte imbalance [Unknown]
  - Blood ethanol increased [Unknown]
  - Gout [Unknown]
  - Generalised tonic-clonic seizure [Unknown]
  - Blood magnesium decreased [Unknown]
  - Atrial fibrillation [Unknown]
  - Deep vein thrombosis [Unknown]
  - Hypomagnesaemia [Recovered/Resolved]
  - Product monitoring error [Unknown]

NARRATIVE: CASE EVENT DATE: 20210101
